FAERS Safety Report 20906632 (Version 1)
Quarter: 2022Q2

REPORT INFORMATION
  Report Type: Spontaneous
  Country: US (occurrence: None)
  Receive Date: 20220602
  Receipt Date: 20220602
  Transmission Date: 20220721
  Serious: Yes (Life-Threatening, Other)
  Sender: FDA-Public Use
  Company Number: None

PATIENT
  Age: 29 Year
  Sex: Female
  Weight: 52.65 kg

DRUGS (1)
  1. ESCITALOPRAM [Suspect]
     Active Substance: ESCITALOPRAM OXALATE
     Indication: Anxiety
     Dosage: OTHER QUANTITY : 1 TABLET(S);?FREQUENCY : DAILY;?
     Route: 048
     Dates: start: 20220525, end: 20220529

REACTIONS (9)
  - Nausea [None]
  - Palpitations [None]
  - Hyperhidrosis [None]
  - Mydriasis [None]
  - Insomnia [None]
  - Eating disorder [None]
  - Muscle tightness [None]
  - Vomiting [None]
  - Seizure [None]

NARRATIVE: CASE EVENT DATE: 20220528
